FAERS Safety Report 8159763-4 (Version None)
Quarter: 2012Q1

REPORT INFORMATION
  Report Type: 
  Country: None (occurrence: None)
  Receive Date: 20120223
  Receipt Date: 20120220
  Transmission Date: 20120608
  Serious: Yes (Death)
  Sender: FDA-Public Use
  Company Number: FR-B.I. PHARMACEUTICALS,INC./RIDGEFIELD-2012-FF-00216FF

PATIENT
  Age: 100 Year
  Sex: Female

DRUGS (1)
  1. PRADAXA [Suspect]
     Indication: HIP ARTHROPLASTY
     Dosage: 150 MG
     Route: 048

REACTIONS (1)
  - POST PROCEDURAL COMPLICATION [None]
